FAERS Safety Report 7395510-1 (Version None)
Quarter: 2011Q2

REPORT INFORMATION
  Report Type: 
  Country: None (occurrence: None)
  Receive Date: 20110405
  Receipt Date: 20110307
  Transmission Date: 20111010
  Serious: Yes (Hospitalization, Other)
  Sender: FDA-Public Use
  Company Number: US-BAYER-2011-004042

PATIENT
  Sex: Female
  Weight: 68.027 kg

DRUGS (4)
  1. YAZ [Suspect]
  2. YAZ [Suspect]
     Indication: PREMENSTRUAL SYNDROME
     Dosage: UNK
     Dates: start: 20021201, end: 20050401
  3. YASMIN [Suspect]
  4. YASMIN [Suspect]
     Indication: PREMENSTRUAL SYNDROME
     Dosage: UNK
     Dates: start: 20021201, end: 20050401

REACTIONS (5)
  - EMOTIONAL DISTRESS [None]
  - PAIN [None]
  - DEEP VEIN THROMBOSIS [None]
  - PAIN IN EXTREMITY [None]
  - ANXIETY [None]
